FAERS Safety Report 7980840-2 (Version None)
Quarter: 2011Q4

REPORT INFORMATION
  Report Type: 
  Country: None (occurrence: None)
  Receive Date: 20111214
  Receipt Date: 20111212
  Transmission Date: 20120403
  Serious: Yes (Other)
  Sender: FDA-Public Use
  Company Number: US-ROCHE-794368

PATIENT
  Sex: Female
  Weight: 68.1 kg

DRUGS (3)
  1. ACCUTANE [Suspect]
  2. ACCUTANE [Suspect]
     Indication: HIDRADENITIS
     Route: 048
     Dates: start: 19830603, end: 19850830
  3. ACCUTANE [Suspect]

REACTIONS (4)
  - CROHN'S DISEASE [None]
  - COLITIS [None]
  - INFLAMMATORY BOWEL DISEASE [None]
  - PANIC ATTACK [None]
